FAERS Safety Report 9143958 (Version 1)
Quarter: 2013Q1

REPORT INFORMATION
  Report Type: Spontaneous
  Country: US (occurrence: US)
  Receive Date: 20130306
  Receipt Date: 20130306
  Transmission Date: 20140127
  Serious: Yes (Disabling)
  Sender: FDA-Public Use
  Company Number: US-ROCHE-1196769

PATIENT
  Sex: Female

DRUGS (2)
  1. TAMIFLU [Suspect]
     Indication: INFLUENZA
     Route: 048
     Dates: start: 20130123
  2. IBUPROFEN [Concomitant]
     Indication: PAIN
     Route: 048

REACTIONS (3)
  - Anxiety [Unknown]
  - Insomnia [Unknown]
  - Thinking abnormal [Unknown]
